FAERS Safety Report 17374325 (Version 1)
Quarter: 2020Q1

REPORT INFORMATION
  Report Type: Spontaneous
  Country: US (occurrence: US)
  Receive Date: 20200206
  Receipt Date: 20200206
  Transmission Date: 20200409
  Serious: No
  Sender: FDA-Public Use
  Company Number: NVSC2020US025806

PATIENT
  Sex: Female
  Weight: 61.23 kg

DRUGS (6)
  1. TIMOLOL MALEATE. [Suspect]
     Active Substance: TIMOLOL MALEATE
     Indication: GLAUCOMA
     Dosage: 15 ML, BID
     Route: 065
  2. PHOSPHOLINE IODIDE [Suspect]
     Active Substance: ECHOTHIOPHATE IODIDE
     Indication: GLAUCOMA
     Dosage: 0.125%, 6.25MG/5ML; ONE DROP IN ONE EYE TWICE DAILY
     Route: 065
  3. ALPHAGAN P [Suspect]
     Active Substance: BRIMONIDINE TARTRATE
     Indication: PRODUCT USED FOR UNKNOWN INDICATION
     Dosage: UNK
     Route: 065
  4. TRAVATAN Z [Suspect]
     Active Substance: TRAVOPROST
     Indication: GLAUCOMA
     Dosage: 1 DF
     Route: 065
  5. DORZOLAMIDE HCL [Suspect]
     Active Substance: DORZOLAMIDE HYDROCHLORIDE
     Indication: GLAUCOMA
     Dosage: 1 DROP IN RIGHT EYE TWICE DAILY; 2%
     Route: 065
  6. BRIMONIDINE TARTRATE. [Suspect]
     Active Substance: BRIMONIDINE TARTRATE
     Indication: GLAUCOMA
     Dosage: 5 ML, BID
     Route: 065
     Dates: start: 201907

REACTIONS (4)
  - Ocular hyperaemia [Unknown]
  - Wrist fracture [Unknown]
  - Drug ineffective [Not Recovered/Not Resolved]
  - Hypertension [Unknown]
